FAERS Safety Report 25582919 (Version 1)
Quarter: 2025Q3

REPORT INFORMATION
  Report Type: Spontaneous
  Country: US (occurrence: US)
  Receive Date: 20250720
  Receipt Date: 20250720
  Transmission Date: 20251021
  Serious: No
  Sender: ABBVIE
  Company Number: US-ABBVIE-6375404

PATIENT
  Sex: Male

DRUGS (1)
  1. BOTOX [Suspect]
     Active Substance: ONABOTULINUMTOXINA
     Indication: Temporomandibular pain and dysfunction syndrome
     Route: 065
     Dates: start: 2025, end: 2025

REACTIONS (4)
  - Facial discomfort [Unknown]
  - Off label use [Unknown]
  - Pain in jaw [Unknown]
  - Feeling abnormal [Unknown]

NARRATIVE: CASE EVENT DATE: 20250101
